FAERS Safety Report 14336631 (Version 1)
Quarter: 2017Q4

REPORT INFORMATION
  Report Type: Spontaneous
  Country: US (occurrence: US)
  Receive Date: 20171229
  Receipt Date: 20171229
  Transmission Date: 20180321
  Serious: Yes (Other)
  Sender: FDA-Public Use
  Company Number: US-BAYER-2017-247010

PATIENT
  Age: 52 Year
  Sex: Female
  Weight: 49.98 kg

DRUGS (2)
  1. SYNTHROID [Concomitant]
     Active Substance: LEVOTHYROXINE SODIUM
     Dosage: UNK
  2. BAYER LOW DOSE [Suspect]
     Active Substance: ASPIRIN
     Indication: CEREBROVASCULAR ACCIDENT PROPHYLAXIS
     Dosage: 1 DF, QD (WITH DINNER)
     Route: 048
     Dates: start: 1996

REACTIONS (6)
  - Product use in unapproved indication [Recovering/Resolving]
  - Vertigo [Not Recovered/Not Resolved]
  - Osteoporosis [Not Recovered/Not Resolved]
  - Vitamin D decreased [Unknown]
  - Cerebral haemorrhage [Unknown]
  - Tinnitus [Not Recovered/Not Resolved]

NARRATIVE: CASE EVENT DATE: 1996
